FAERS Safety Report 8405078-6 (Version None)
Quarter: 2012Q2

REPORT INFORMATION
  Report Type: 
  Country: None (occurrence: None)
  Receive Date: 20120601
  Receipt Date: 20120503
  Transmission Date: 20120825
  Serious: Yes (Other)
  Sender: FDA-Public Use
  Company Number: CHPA2012US010381

PATIENT
  Age: 78 Year
  Sex: Female

DRUGS (1)
  1. EXCEDRIN (MIGRAINE) [Suspect]
     Indication: HEADACHE
     Dosage: 1 DF, Q4H
     Route: 048
     Dates: start: 19660101, end: 19660101

REACTIONS (11)
  - VISUAL ACUITY REDUCED [None]
  - AGITATION [None]
  - UNDERDOSE [None]
  - HEMIPARESIS [None]
  - OPEN FRACTURE [None]
  - HYPOAESTHESIA [None]
  - CEREBROVASCULAR ACCIDENT [None]
  - FALL [None]
  - DEAFNESS [None]
  - DRUG DEPENDENCE [None]
  - PALPITATIONS [None]
